FAERS Safety Report 24209946 (Version 1)
Quarter: 2024Q3

REPORT INFORMATION
  Report Type: Report from Study
  Country: PK (occurrence: PK)
  Receive Date: 20240814
  Receipt Date: 20240814
  Transmission Date: 20241016
  Serious: Yes (Death)
  Sender: ROCHE
  Company Number: PK-ROCHE-10000051818

PATIENT
  Age: 64 Year
  Sex: Female

DRUGS (3)
  1. HERCEPTIN [Suspect]
     Active Substance: TRASTUZUMAB
     Indication: Breast cancer metastatic
     Route: 058
     Dates: start: 20230830, end: 20240707
  2. HERCEPTIN [Suspect]
     Active Substance: TRASTUZUMAB
     Route: 058
  3. HERCEPTIN [Suspect]
     Active Substance: TRASTUZUMAB
     Route: 058

REACTIONS (1)
  - Neoplasm malignant [Fatal]

NARRATIVE: CASE EVENT DATE: 20240720
